FAERS Safety Report 24372931 (Version 2)
Quarter: 2025Q2

REPORT INFORMATION
  Report Type: Spontaneous
  Country: US (occurrence: US)
  Receive Date: 20240927
  Receipt Date: 20250405
  Transmission Date: 20250716
  Serious: Yes (Hospitalization, Other)
  Sender: AUROBINDO
  Company Number: US-MLMSERVICE-20240910-PI188113-00125-1

PATIENT
  Age: 69 Year
  Sex: Male

DRUGS (10)
  1. CLOZAPINE [Suspect]
     Active Substance: CLOZAPINE
     Indication: Cognitive disorder
     Dosage: 125 MILLIGRAM, ONCE A DAY (125 MG AT NIGHT)
     Route: 065
     Dates: start: 202304, end: 2023
  2. CLOZAPINE [Suspect]
     Active Substance: CLOZAPINE
     Route: 065
  3. DONEPEZIL [Suspect]
     Active Substance: DONEPEZIL
     Indication: Cognitive disorder
     Dosage: 10 MILLIGRAM, ONCE A DAY (INCREASED FROM 5 MG TO 10 MG DAILY)
     Route: 065
     Dates: start: 202305, end: 2023
  4. DONEPEZIL [Suspect]
     Active Substance: DONEPEZIL
     Dosage: 5 MILLIGRAM, ONCE A DAY
     Route: 065
     Dates: start: 202304, end: 202305
  5. DONEPEZIL [Suspect]
     Active Substance: DONEPEZIL
     Route: 065
     Dates: start: 202309
  6. DIVALPROEX SODIUM [Suspect]
     Active Substance: DIVALPROEX SODIUM
     Indication: Schizoaffective disorder bipolar type
     Dosage: 250 MILLIGRAM, TWO TIMES A DAY
     Route: 065
     Dates: start: 2022
  7. OLANZAPINE [Suspect]
     Active Substance: OLANZAPINE
     Indication: Schizoaffective disorder bipolar type
     Dosage: 15 MILLIGRAM, TWO TIMES A DAY
     Route: 065
     Dates: start: 2022
  8. OXCARBAZEPINE [Suspect]
     Active Substance: OXCARBAZEPINE
     Indication: Schizoaffective disorder bipolar type
     Dosage: 150 MILLIGRAM, TWO TIMES A DAY
     Route: 065
     Dates: start: 2022
  9. HALOPERIDOL [Concomitant]
     Active Substance: HALOPERIDOL
     Indication: Schizoaffective disorder bipolar type
     Dosage: 7.5 MILLIGRAM, TWO TIMES A DAY
     Route: 030
     Dates: start: 202304, end: 2023
  10. HALOPERIDOL [Concomitant]
     Active Substance: HALOPERIDOL
     Dosage: 5 MILLIGRAM, TWO TIMES A DAY
     Route: 065

REACTIONS (5)
  - Altered state of consciousness [Recovered/Resolved]
  - Cholinergic syndrome [Recovered/Resolved]
  - Delirium [Recovered/Resolved]
  - Fall [Recovered/Resolved]
  - Sedation complication [Unknown]

NARRATIVE: CASE EVENT DATE: 20220101
